FAERS Safety Report 18698774 (Version 3)
Quarter: 2021Q2

REPORT INFORMATION
  Report Type: Spontaneous
  Country: US (occurrence: US)
  Receive Date: 20210104
  Receipt Date: 20210426
  Transmission Date: 20210717
  Serious: Yes (Other)
  Sender: FDA-Public Use
  Company Number: US-PURDUE-USA-2020-0192020

PATIENT
  Sex: Male

DRUGS (6)
  1. OXYCONTIN [Suspect]
     Active Substance: OXYCODONE HYDROCHLORIDE
     Indication: PAIN
     Dosage: 40 MG, AM
     Route: 048
  2. DILAUDID [Suspect]
     Active Substance: HYDROMORPHONE HYDROCHLORIDE
     Indication: PAIN
     Dosage: UNK
     Route: 048
  3. MORPHINE SULFATE EXTENDED?RELEASE TABLETS (RHODES 74?769, 74?862) [Suspect]
     Active Substance: MORPHINE SULFATE
     Indication: PAIN
     Dosage: UNK
     Route: 048
  4. HYDROCODONE BITARTRATE AND ACETAMINOPHEN [Suspect]
     Active Substance: ACETAMINOPHEN\HYDROCODONE BITARTRATE
     Indication: PAIN
     Dosage: UNK
     Route: 048
  5. OXY IR [Suspect]
     Active Substance: OXYCODONE HYDROCHLORIDE
     Indication: PRODUCT USED FOR UNKNOWN INDICATION
     Dosage: UNK
     Route: 065
  6. OXYCODONE HCL TABLETS (RHODES 91?490) [Suspect]
     Active Substance: OXYCODONE HYDROCHLORIDE
     Indication: PAIN
     Dosage: 2 DF, PRN
     Route: 048

REACTIONS (43)
  - Amnesia [Unknown]
  - Anal incontinence [Unknown]
  - Decreased appetite [Unknown]
  - Diarrhoea [Unknown]
  - Anger [Unknown]
  - Balance disorder [Unknown]
  - Flatulence [Unknown]
  - Urticaria [Unknown]
  - Somnolence [Unknown]
  - Pain [Unknown]
  - Epistaxis [Unknown]
  - Mood swings [Unknown]
  - Impulsive behaviour [Unknown]
  - Dysphonia [Unknown]
  - Rash [Unknown]
  - Fatigue [Unknown]
  - Vertigo [Unknown]
  - Vision blurred [Unknown]
  - Aphonia [Unknown]
  - Sexual dysfunction [Unknown]
  - Dehydration [Unknown]
  - Weight decreased [Unknown]
  - Emotional distress [Unknown]
  - Cognitive disorder [Unknown]
  - Abdominal distension [Unknown]
  - Nausea [Unknown]
  - Drug dependence [Unknown]
  - Sleep disorder [Unknown]
  - Feeling abnormal [Unknown]
  - Memory impairment [Unknown]
  - Depression [Unknown]
  - Dysphemia [Unknown]
  - Constipation [Unknown]
  - Anxiety [Unknown]
  - Night sweats [Unknown]
  - Dermatitis [Unknown]
  - Irritability [Unknown]
  - Paraesthesia [Unknown]
  - Disturbance in attention [Unknown]
  - Vomiting [Unknown]
  - Diverticulitis [Unknown]
  - Bowel movement irregularity [Unknown]
  - Hyperhidrosis [Unknown]
